FAERS Safety Report 6124013-7 (Version None)
Quarter: 2009Q1

REPORT INFORMATION
  Report Type: 
  Country: None (occurrence: None)
  Receive Date: 20090318
  Receipt Date: 20090318
  Transmission Date: 20090719
  Serious: Yes (Death)
  Sender: FDA-Public Use
  Company Number: None

PATIENT
  Sex: Female
  Weight: 49.2 kg

DRUGS (2)
  1. ERLOTINIB [Suspect]
     Indication: LUNG NEOPLASM MALIGNANT
     Dosage: 150 MG DAILY PO
     Route: 048
     Dates: start: 20090123, end: 20090226
  2. SUNITINIB [Suspect]
     Indication: LUNG NEOPLASM MALIGNANT
     Dosage: 37.5 MG DAILY PO
     Route: 048
     Dates: start: 20090123, end: 20090226

REACTIONS (1)
  - DISEASE PROGRESSION [None]
